FAERS Safety Report 7072463-7 (Version None)
Quarter: 2010Q4

REPORT INFORMATION
  Report Type: 
  Country: None (occurrence: None)
  Receive Date: 20101029
  Receipt Date: 20100201
  Transmission Date: 20110411
  Serious: No
  Sender: FDA-Public Use
  Company Number: A0842355A

PATIENT
  Age: 59 Year
  Sex: Female

DRUGS (15)
  1. ADVAIR DISKUS 100/50 [Suspect]
     Indication: ASTHMA
     Dosage: 250MCG PER DAY
     Route: 055
  2. KLONOPIN [Concomitant]
  3. CYCLOBENZAPRINE [Concomitant]
  4. KADIAN [Concomitant]
  5. UNKNOWN MEDICATION [Concomitant]
  6. LISINOPRIL [Concomitant]
  7. HYDROCHLOROTHIAZIDE [Concomitant]
  8. SINGULAIR [Concomitant]
  9. UNKNOWN MEDICATION [Concomitant]
  10. LEVOTHYROXINE [Concomitant]
  11. TRAZODONE [Concomitant]
  12. NIPRADILOL [Concomitant]
  13. OMEPRAZOLE [Concomitant]
  14. PHENAZOPYRIDINE HCL TAB [Concomitant]
  15. ALBUTEROL [Concomitant]

REACTIONS (2)
  - DEVICE FAILURE [None]
  - TOOTH FRACTURE [None]
